FAERS Safety Report 11265273 (Version 1)
Quarter: 2015Q3

REPORT INFORMATION
  Report Type: Spontaneous
  Country: US (occurrence: US)
  Receive Date: 20150713
  Receipt Date: 20150713
  Transmission Date: 20151125
  Serious: Yes (Death, Other)
  Sender: FDA-Public Use
  Company Number: US-TEVA-576838USA

PATIENT
  Age: 64 Year
  Sex: Male

DRUGS (18)
  1. DILAUDID [Concomitant]
     Active Substance: HYDROMORPHONE HYDROCHLORIDE
     Indication: PAIN
     Route: 065
  2. XARELTO [Suspect]
     Active Substance: RIVAROXABAN
     Indication: PROPHYLAXIS
     Dosage: 20 MG DAILY EVERY EVENING
     Route: 048
     Dates: start: 20140126, end: 20140207
  3. LASIX [Concomitant]
     Active Substance: FUROSEMIDE
     Route: 042
  4. ATIVAN [Concomitant]
     Active Substance: LORAZEPAM
     Dosage: 0.5 TO 1 MG EVERY 8 H PRN WITH 30 DISPENSED
     Route: 065
  5. TOPROL XL [Concomitant]
     Active Substance: METOPROLOL SUCCINATE
     Dosage: 25 MG EVERY DAY
     Route: 065
  6. ACETYLCYSTEINE. [Concomitant]
     Active Substance: ACETYLCYSTEINE
  7. XARELTO [Suspect]
     Active Substance: RIVAROXABAN
     Indication: PROPHYLAXIS
     Dosage: 10 MG DAILY WITH DINNER
     Route: 048
  8. AZITHROMYCIN [Concomitant]
     Active Substance: AZITHROMYCIN ANHYDROUS
     Indication: ATYPICAL PNEUMONIA
     Dosage: 500 MG DAILY
     Route: 065
  9. ENOXAPARIN [Suspect]
     Active Substance: ENOXAPARIN
     Indication: PROPHYLAXIS
     Dosage: 40 MG/0.4 ML AT BEDTIME, FOR A TOTAL OF 12 DOSES
     Route: 058
     Dates: start: 20140114, end: 20140126
  10. PREDNISONE. [Concomitant]
     Active Substance: PREDNISONE
     Route: 065
  11. BENZONATATE. [Concomitant]
     Active Substance: BENZONATATE
     Dosage: 200 MG EVERY 8 H PRN
     Route: 065
  12. CEFTRIAXONE. [Concomitant]
     Active Substance: CEFTRIAXONE
     Indication: ATYPICAL PNEUMONIA
     Dosage: 100 ML NS, 1 G Q24H
     Route: 065
  13. LASIX [Concomitant]
     Active Substance: FUROSEMIDE
     Route: 042
  14. LASIX [Concomitant]
     Active Substance: FUROSEMIDE
     Dosage: 40 MG DAILY FOR 30 DAYS
     Route: 048
  15. MORPHINE [Concomitant]
     Active Substance: MORPHINE
     Dosage: 5 TO 10 MG EVERY 2 H PRN WITH 30 ML
     Route: 060
  16. DILTIAZEM [Concomitant]
     Active Substance: DILTIAZEM
     Dosage: 240 MG EVERY DAY
     Route: 065
  17. PREVACID [Concomitant]
     Active Substance: LANSOPRAZOLE
     Indication: PROPHYLAXIS
     Dosage: 30 MG EVERY DAY
     Route: 065
  18. METFORMIN [Concomitant]
     Active Substance: METFORMIN HYDROCHLORIDE
     Indication: HYPERGLYCAEMIA
     Route: 065

REACTIONS (3)
  - Hyperglycaemia [Unknown]
  - Pulmonary haemorrhage [Fatal]
  - Oedema peripheral [Unknown]
